FAERS Safety Report 8808991 (Version 1)
Quarter: 2012Q4

REPORT INFORMATION
  Report Type: Spontaneous
  Country: US (occurrence: None)
  Receive Date: 20120920
  Receipt Date: 20120920
  Transmission Date: 20130627
  Serious: Yes (Other)
  Sender: FDA-Public Use
  Company Number: None

PATIENT
  Age: 40 Year
  Sex: Female
  Weight: 69.4 kg

DRUGS (2)
  1. CRYSELLE [Suspect]
     Indication: AMENORRHEA
     Dosage: 1 Tablet Daily po
     Route: 048
     Dates: start: 20120121, end: 20120305
  2. CRYSELLE [Suspect]
     Indication: POLYCYSTIC OVARIAN SYNDROME
     Dosage: 1 Tablet Daily po
     Route: 048
     Dates: start: 20120121, end: 20120305

REACTIONS (7)
  - Pericardial effusion [None]
  - Pulmonary thrombosis [None]
  - Night sweats [None]
  - Fatigue [None]
  - Post-traumatic stress disorder [None]
  - Panic attack [None]
  - Coagulopathy [None]
